FAERS Safety Report 10534129 (Version 2)
Quarter: 2015Q2

REPORT INFORMATION
  Report Type: Spontaneous
  Country: US (occurrence: None)
  Receive Date: 20141020
  Receipt Date: 20150528
  Transmission Date: 20150821
  Serious: Yes (Hospitalization)
  Sender: FDA-Public Use
  Company Number: 1224850-2014-00008

PATIENT
  Age: 85 Year
  Sex: Male

DRUGS (13)
  1. PHOSLO [Suspect]
     Active Substance: CALCIUM ACETATE
     Indication: BONE DISORDER
  2. CARVEDILOL. [Concomitant]
     Active Substance: CARVEDILOL
  3. GENTAMICIN. [Concomitant]
     Active Substance: GENTAMICIN
  4. DELFLEX [Concomitant]
     Active Substance: CALCIUM CHLORIDE\DEXTROSE MONOHYDRATE\MAGNESIUM CHLORIDE\SODIUM CHLORIDE\SODIUM LACTATE
  5. KONAFLOX [Concomitant]
  6. LIBERTY CYCLER [Concomitant]
     Active Substance: DEVICE
  7. LIBERTY CYCLER CASSETTE [Concomitant]
     Active Substance: DEVICE
  8. AMLODIPINE [Concomitant]
     Active Substance: AMLODIPINE BESYLATE
  9. FINASTERIDE. [Concomitant]
     Active Substance: FINASTERIDE
  10. SIMVASTATIN. [Concomitant]
     Active Substance: SIMVASTATIN
  11. VITAMIN D [Concomitant]
     Active Substance: CHOLECALCIFEROL
  12. EPOGEN [Concomitant]
     Active Substance: ERYTHROPOIETIN
  13. LEVOTHYROXINE [Concomitant]
     Active Substance: LEVOTHYROXINE

REACTIONS (7)
  - Dyspnoea [None]
  - Hyponatraemia [None]
  - Oedema [None]
  - Staphylococcal infection [None]
  - Peritonitis bacterial [None]
  - Peritoneal haemorrhage [None]
  - Medical device complication [None]

NARRATIVE: CASE EVENT DATE: 20140825
